FAERS Safety Report 5148651-3 (Version None)
Quarter: 2006Q4

REPORT INFORMATION
  Report Type: 
  Country: None (occurrence: None)
  Receive Date: 20061107
  Receipt Date: 20061023
  Transmission Date: 20070319
  Serious: Yes (Hospitalization)
  Sender: FDA-Public Use
  Company Number: 2006002028

PATIENT
  Age: 77 Year
  Sex: Male
  Weight: 62.6 kg

DRUGS (10)
  1. ERLOTINIB (TABLET) [Suspect]
     Indication: NON-SMALL CELL LUNG CANCER
     Dosage: 150 MG (QD), ORAL
     Route: 048
     Dates: start: 20060824, end: 20060923
  2. ERLOTINIB (TABLET) [Suspect]
     Indication: NON-SMALL CELL LUNG CANCER
     Dosage: 150 MG (QD), ORAL
     Route: 048
     Dates: start: 20060926
  3. COREG [Concomitant]
  4. BACLOFEN [Concomitant]
  5. ATACAND [Concomitant]
  6. PLAVIX [Concomitant]
  7. NORVASC [Concomitant]
  8. METFORMIN [Concomitant]
  9. TRICOR [Concomitant]
  10. LISINOPRIL [Concomitant]

REACTIONS (1)
  - HYPERKALAEMIA [None]
